FAERS Safety Report 12636891 (Version 1)
Quarter: 2016Q3

REPORT INFORMATION
  Report Type: Spontaneous
  Country: JP (occurrence: JP)
  Receive Date: 20160809
  Receipt Date: 20160809
  Transmission Date: 20161109
  Serious: Yes (Other)
  Sender: FDA-Public Use
  Company Number: JP-PFIZER INC-2016373041

PATIENT
  Age: 27 Year
  Sex: Male

DRUGS (4)
  1. DOXAZOSIN MESILATE [Suspect]
     Active Substance: DOXAZOSIN MESYLATE
     Route: 065
  2. ENALAPRIL MALEATE. [Suspect]
     Active Substance: ENALAPRIL MALEATE
     Route: 065
  3. BISOPROLOL [Suspect]
     Active Substance: BISOPROLOL
  4. EPLERENONE. [Suspect]
     Active Substance: EPLERENONE
     Route: 065

REACTIONS (1)
  - Toxic epidermal necrolysis [Recovering/Resolving]
